FAERS Safety Report 21701097 (Version 1)
Quarter: 2022Q4

REPORT INFORMATION
  Report Type: Spontaneous
  Country: US (occurrence: None)
  Receive Date: 20221207
  Receipt Date: 20221207
  Transmission Date: 20230113
  Serious: Yes (Hospitalization)
  Sender: FDA-Public Use
  Company Number: None

PATIENT
  Sex: Female

DRUGS (13)
  1. MYCOPHENOLIC ACID [Suspect]
     Active Substance: MYCOPHENOLIC ACID
     Indication: Heart transplant
     Dosage: FREQUENCY : TWICE A DAY;?
     Route: 048
     Dates: start: 20210324
  2. MYCOPHENOLIC ACID [Suspect]
     Active Substance: MYCOPHENOLIC ACID
     Dosage: FREQUENCY : TWICE A DAY;?
     Route: 048
  3. ALBUTEROL AER HFA [Concomitant]
  4. AMLODIPINE [Concomitant]
     Active Substance: AMLODIPINE BESYLATE
  5. ASPIRIN [Concomitant]
     Active Substance: ASPIRIN
  6. CALCIUM [Concomitant]
  7. ERGOCALCIFER DRO [Concomitant]
  8. FERROUS SULFATE [Concomitant]
     Active Substance: FERROUS SULFATE
  9. GENGRAF [Concomitant]
     Active Substance: CYCLOSPORINE
  10. MAGNESIUM OXIDE [Concomitant]
     Active Substance: MAGNESIUM OXIDE
  11. ROSUVASTATIN [Concomitant]
     Active Substance: ROSUVASTATIN
  12. TYLENOL CHLD [Concomitant]
  13. VITAMIN D [Concomitant]
     Active Substance: VITAMIN D NOS

REACTIONS (1)
  - Skin neoplasm excision [None]
